FAERS Safety Report 4891815-4 (Version None)
Quarter: 2006Q1

REPORT INFORMATION
  Report Type: 
  Country: None (occurrence: None)
  Receive Date: 20060123
  Receipt Date: 20060110
  Transmission Date: 20060701
  Serious: Yes (Life-Threatening, Hospitalization)
  Sender: FDA-Public Use
  Company Number: NL200601001225

PATIENT
  Age: 86 Year
  Sex: Female
  Weight: 55 kg

DRUGS (2)
  1. FORSTEO (TERIPARATIDE UNKNOWN MANUFACTURE) UNKNOWN [Suspect]
     Indication: OSTEOPOROSIS
     Dosage: 20 UG, DAILY (1/D), SUBCUTANEOUS
     Route: 058
     Dates: start: 20050522, end: 20060101
  2. FORTEO [Concomitant]

REACTIONS (1)
  - CEREBROVASCULAR ACCIDENT [None]
